FAERS Safety Report 4533497-7 (Version None)
Quarter: 2004Q4

REPORT INFORMATION
  Report Type: 
  Country: None (occurrence: None)
  Receive Date: 20041221
  Receipt Date: 20041125
  Transmission Date: 20050328
  Serious: Yes (Life-Threatening, Hospitalization, Other)
  Sender: FDA-Public Use
  Company Number: BE-AMGEN-UK100802

PATIENT
  Sex: Female
  Weight: 56 kg

DRUGS (6)
  1. NEULASTA [Suspect]
     Indication: CHEMOTHERAPY
     Route: 058
     Dates: start: 20041108, end: 20041108
  2. BLEOMYCIN [Concomitant]
     Route: 042
  3. ETOPOSIDE [Concomitant]
     Route: 042
  4. CISPLATIN [Concomitant]
     Route: 042
  5. EFFEXOR [Concomitant]
     Route: 048
  6. LOSEC [Concomitant]
     Route: 048

REACTIONS (3)
  - CELLULITIS [None]
  - LEUKOCYTOSIS [None]
  - MYOCARDIAL INFARCTION [None]
